FAERS Safety Report 8854836 (Version 2)
Quarter: 2012Q4

REPORT INFORMATION
  Report Type: 
  Country: US (occurrence: US)
  Receive Date: 20121023
  Receipt Date: 20121109
  Transmission Date: 20130627
  Serious: No
  Sender: FDA-Public Use
  Company Number: US-PFIZER INC-2012257474

PATIENT
  Age: 75 Year
  Sex: Male
  Weight: 68.03 kg

DRUGS (3)
  1. TOVIAZ [Suspect]
     Indication: NOCTURIA
     Dosage: 4 mg, 1x/day
     Route: 048
     Dates: start: 20120814
  2. TOVIAZ [Suspect]
     Indication: URINARY FREQUENCY
  3. TAMSULOSIN [Concomitant]
     Dosage: UNK

REACTIONS (2)
  - Bladder disorder [Unknown]
  - Dry mouth [Not Recovered/Not Resolved]
